FAERS Safety Report 14755736 (Version 1)
Quarter: 2018Q2

REPORT INFORMATION
  Report Type: Spontaneous
  Country: US (occurrence: US)
  Receive Date: 20180413
  Receipt Date: 20180413
  Transmission Date: 20180711
  Serious: No
  Sender: FDA-Public Use
  Company Number: US-PFIZER INC-2018147701

PATIENT
  Sex: Female

DRUGS (1)
  1. PROTONIX [Suspect]
     Active Substance: PANTOPRAZOLE SODIUM
     Dosage: UNK
     Dates: start: 20180406

REACTIONS (3)
  - Pruritus generalised [Unknown]
  - Eye disorder [Unknown]
  - Eye pruritus [Unknown]

NARRATIVE: CASE EVENT DATE: 201804
